FAERS Safety Report 19187251 (Version 1)
Quarter: 2021Q2

REPORT INFORMATION
  Report Type: Spontaneous
  Country: US (occurrence: US)
  Receive Date: 20210428
  Receipt Date: 20210428
  Transmission Date: 20210717
  Serious: Yes (Hospitalization)
  Sender: FDA-Public Use
  Company Number: US-CHIESI-2021CHF01887

PATIENT
  Age: 16 Year
  Sex: Female

DRUGS (6)
  1. BETHKIS [Suspect]
     Active Substance: TOBRAMYCIN
     Indication: PSEUDOMONAS INFECTION
  2. BETHKIS [Suspect]
     Active Substance: TOBRAMYCIN
     Indication: HYPOXIA
  3. BETHKIS [Suspect]
     Active Substance: TOBRAMYCIN
     Indication: BURKHOLDERIA MALLEI INFECTION
  4. BETHKIS [Suspect]
     Active Substance: TOBRAMYCIN
     Indication: BACTERIAL INFECTION
     Dosage: 300 MILLIGRAM, BID
     Route: 055
     Dates: start: 20210310
  5. BETHKIS [Suspect]
     Active Substance: TOBRAMYCIN
     Indication: RESPIRATORY FAILURE
  6. BETHKIS [Suspect]
     Active Substance: TOBRAMYCIN
     Indication: HYPERCAPNIA

REACTIONS (4)
  - Post procedural complication [Recovered/Resolved]
  - Product use in unapproved indication [Recovered/Resolved]
  - Skin laceration [Recovered/Resolved]
  - Spinal operation [Recovered/Resolved]

NARRATIVE: CASE EVENT DATE: 20210310
